FAERS Safety Report 9576949 (Version 2)
Quarter: 2014Q1

REPORT INFORMATION
  Report Type: Spontaneous
  Country: US (occurrence: US)
  Receive Date: 20131001
  Receipt Date: 20140228
  Transmission Date: 20141002
  Serious: Yes (Other)
  Sender: FDA-Public Use
  Company Number: US-AMGEN-USASP2013005323

PATIENT
  Age: 66 Year
  Sex: Female
  Weight: 81.63 kg

DRUGS (9)
  1. ENBREL [Suspect]
     Indication: RHEUMATOID ARTHRITIS
     Dosage: 50 MG, QWK
     Route: 058
  2. BONIVA [Concomitant]
     Dosage: 150 MG, UNK
  3. LISINOPRIL AND HYDROCHLOROTHIAZIDE [Concomitant]
     Dosage: 20-12.5 MG
  4. METOPROLOL TARTRATE [Concomitant]
     Dosage: 25 MG, UNK
  5. GLUCOSAMINE AND CHONDROITIN [Concomitant]
     Dosage: 500-400
  6. CALCIUM D                          /00944201/ [Concomitant]
     Dosage: UNK
  7. NORCO [Concomitant]
     Dosage: 5 - 325 MG
  8. OMEGA 3                            /01334101/ [Concomitant]
     Dosage: 1000 MG, UNK
  9. VITAMIN C                          /00008001/ [Concomitant]
     Dosage: 500 MG, UNK

REACTIONS (1)
  - Urinary tract infection [Unknown]
